FAERS Safety Report 23617311 (Version 2)
Quarter: 2024Q1

REPORT INFORMATION
  Report Type: Spontaneous
  Country: CA (occurrence: CA)
  Receive Date: 20240311
  Receipt Date: 20240314
  Transmission Date: 20240410
  Serious: Yes (Other)
  Sender: FDA-Public Use
  Company Number: CA-BEH-2024169374

PATIENT
  Age: 81 Year
  Sex: Male

DRUGS (5)
  1. PRIVIGEN [Suspect]
     Active Substance: HUMAN IMMUNOGLOBULIN G
     Indication: Secondary immunodeficiency
     Dosage: 5 GRAM, TOT (1/4 OF 20 GRAM VIAL)
     Route: 065
     Dates: start: 20240124, end: 20240124
  2. PRIVIGEN [Suspect]
     Active Substance: HUMAN IMMUNOGLOBULIN G
     Dosage: 5 GRAM, TOT (5G ? 4/4, 50ML (AMOUNT))
     Route: 065
     Dates: start: 20240124, end: 20240124
  3. PREDNISONE;RITUXIMAB [Concomitant]
  4. LASIX [Concomitant]
     Active Substance: FUROSEMIDE
     Indication: Premedication
     Dosage: 20 MILLIGRAM
     Dates: start: 20240124
  5. LASIX [Concomitant]
     Active Substance: FUROSEMIDE
     Dosage: 40 MILLIGRAM
     Route: 042
     Dates: start: 20240125

REACTIONS (17)
  - Febrile nonhaemolytic transfusion reaction [Recovered/Resolved]
  - Chills [Recovered/Resolved]
  - Pyrexia [Recovered/Resolved]
  - Acute pulmonary oedema [Recovered/Resolved]
  - Transfusion-related circulatory overload [Recovered/Resolved]
  - Dyspnoea [Recovered/Resolved]
  - Hypertension [Recovered/Resolved]
  - Tachypnoea [Recovered/Resolved]
  - Tachycardia [Recovered/Resolved]
  - Nausea [Recovered/Resolved]
  - Back pain [Recovered/Resolved]
  - Oxygen saturation decreased [Recovered/Resolved]
  - Feeling cold [Recovered/Resolved]
  - Tremor [Recovered/Resolved]
  - Hyperventilation [Recovered/Resolved]
  - Lung opacity [Unknown]
  - N-terminal prohormone brain natriuretic peptide increased [Unknown]

NARRATIVE: CASE EVENT DATE: 20240124
